FAERS Safety Report 8491180-X (Version None)
Quarter: 2012Q3

REPORT INFORMATION
  Report Type: 
  Country: None (occurrence: None)
  Receive Date: 20120706
  Receipt Date: 20120625
  Transmission Date: 20120928
  Serious: Yes (Death, Hospitalization)
  Sender: FDA-Public Use
  Company Number: CA-JNJFOC-20120612777

PATIENT
  Sex: Female
  Weight: 89 kg

DRUGS (1)
  1. REMICADE [Suspect]
     Indication: RHEUMATOID ARTHRITIS
     Dosage: ONCE 6-8 WEEKS
     Route: 042

REACTIONS (3)
  - CHOLECYSTITIS [None]
  - SEPSIS [None]
  - INTESTINAL ISCHAEMIA [None]
